FAERS Safety Report 4818760-4 (Version None)
Quarter: 2005Q4

REPORT INFORMATION
  Report Type: 
  Country: None (occurrence: None)
  Receive Date: 20051101
  Receipt Date: 20051020
  Transmission Date: 20060501
  Serious: Yes (Hospitalization)
  Sender: FDA-Public Use
  Company Number: HQWYE193724OCT05

PATIENT
  Age: 65 Year
  Sex: Female
  Weight: 50.85 kg

DRUGS (11)
  1. PREMPRO [Suspect]
     Indication: INSOMNIA
     Dosage: 1 TABLET 1X PER 1 DAY, ORAL
     Route: 048
     Dates: start: 19880101
  2. CLONAZEPAM [Suspect]
     Indication: ANXIETY
     Dates: end: 20050922
  3. SPIRIVA [Concomitant]
  4. PULMICORT [Concomitant]
  5. PROVENTIL (SALBUTAMOL SULFATE) [Concomitant]
  6. SINGULAIR [Concomitant]
  7. ZYRTEC [Concomitant]
  8. FLONASE [Concomitant]
  9. POTASSIUM (POTASSIUM) [Concomitant]
  10. PREVACID [Concomitant]
  11. LEXAPRO [Concomitant]

REACTIONS (9)
  - ABDOMINAL PAIN [None]
  - ALOPECIA [None]
  - ANXIETY [None]
  - CARDIAC PACEMAKER INSERTION [None]
  - CONDITION AGGRAVATED [None]
  - LOSS OF CONSCIOUSNESS [None]
  - METRORRHAGIA [None]
  - TREATMENT NONCOMPLIANCE [None]
  - WEIGHT DECREASED [None]
